FAERS Safety Report 20822343 (Version 1)
Quarter: 2022Q2

REPORT INFORMATION
  Report Type: Spontaneous
  Country: CN (occurrence: None)
  Receive Date: 20220512
  Receipt Date: 20220512
  Transmission Date: 20220721
  Serious: Yes (Other)
  Sender: FDA-Public Use
  Company Number: 2022A182045

PATIENT
  Age: 55 Year
  Sex: Male

DRUGS (7)
  1. OSIMERTINIB [Suspect]
     Active Substance: OSIMERTINIB
     Indication: Lung adenocarcinoma
     Route: 048
  2. BEVACIZUMAB [Concomitant]
     Active Substance: BEVACIZUMAB
     Indication: Lung adenocarcinoma
     Dosage: 7.5MG/KG THREE TIME A WEEK
     Route: 065
  3. CATEQUENTINIB [Concomitant]
     Active Substance: CATEQUENTINIB
     Indication: Lung adenocarcinoma
     Dosage: 12MG D1-14, Q3W
     Route: 065
  4. PEMETREXED [Concomitant]
     Active Substance: PEMETREXED
     Indication: Lung adenocarcinoma
     Dosage: 500MG/KG Q4W
     Route: 065
  5. TEMOZOLOMIDE [Concomitant]
     Active Substance: TEMOZOLOMIDE
     Indication: Lung adenocarcinoma
     Dosage: 300MG D1-5,Q4W
     Route: 065
  6. DACOMITINIB [Concomitant]
     Active Substance: DACOMITINIB
     Indication: Lung adenocarcinoma
     Route: 065
  7. OLAPARIB [Concomitant]
     Active Substance: OLAPARIB
     Indication: Lung adenocarcinoma
     Dosage: 100 MG TWO TIMES A DAY
     Route: 048

REACTIONS (3)
  - Drug resistance [Unknown]
  - Gene mutation [Unknown]
  - Metastases to meninges [Unknown]
